FAERS Safety Report 6381534-X (Version None)
Quarter: 2009Q3

REPORT INFORMATION
  Report Type: 
  Country: None (occurrence: None)
  Receive Date: 20090925
  Receipt Date: 20090914
  Transmission Date: 20100115
  Serious: Yes (Death)
  Sender: FDA-Public Use
  Company Number: FR-1170923

PATIENT
  Age: 1 Month
  Sex: Female

DRUGS (5)
  1. ATROPINE SULFATE [Suspect]
     Dosage: 1 GTT OU OPHTHALMIC
     Route: 047
     Dates: start: 20090805, end: 20090805
  2. FERROSTRANE (SODIUM FEREDETATE) [Concomitant]
  3. LEUCOVORIN CALCIUM [Concomitant]
  4. VITAMINE K(MENADIONE) [Concomitant]
  5. UVESTEROL (UVESTEROL) [Concomitant]

REACTIONS (4)
  - COLITIS ULCERATIVE [None]
  - MYDRIASIS [None]
  - OXYGEN SATURATION DECREASED [None]
  - SUBILEUS [None]
